FAERS Safety Report 8520111-9 (Version None)
Quarter: 2012Q3

REPORT INFORMATION
  Report Type: 
  Country: None (occurrence: None)
  Receive Date: 20120719
  Receipt Date: 20120713
  Transmission Date: 20120928
  Serious: Yes (Hospitalization)
  Sender: FDA-Public Use
  Company Number: US-BAYER-2012-014744

PATIENT
  Age: 48 Year
  Sex: Female
  Weight: 65.306 kg

DRUGS (3)
  1. CARBATROL [Concomitant]
     Dosage: UNK
     Dates: start: 19920101
  2. YAZ [Suspect]
     Dosage: UNK
     Dates: start: 20070101, end: 20070401
  3. TEGRETOL [Concomitant]
     Dosage: UNK
     Dates: start: 19920101

REACTIONS (6)
  - FEAR [None]
  - INJURY [None]
  - ANXIETY [None]
  - DEEP VEIN THROMBOSIS [None]
  - PAIN [None]
  - EMOTIONAL DISTRESS [None]
